FAERS Safety Report 7990958-6 (Version None)
Quarter: 2011Q4

REPORT INFORMATION
  Report Type: 
  Country: None (occurrence: None)
  Receive Date: 20111219
  Receipt Date: 20111206
  Transmission Date: 20120403
  Serious: Yes (Other)
  Sender: FDA-Public Use
  Company Number: DE-US-EMD SERONO, INC.-7100020

PATIENT
  Age: 40 Year
  Sex: Female
  Weight: 68 kg

DRUGS (3)
  1. PERGOVERIS [Suspect]
     Indication: IN VITRO FERTILISATION
     Route: 058
     Dates: start: 20111121, end: 20111126
  2. CHORIONIC GONADOTROPIN [Concomitant]
     Dates: start: 20111126
  3. GONAL-F [Suspect]
     Indication: IN VITRO FERTILISATION
     Route: 058
     Dates: start: 20111116, end: 20111120

REACTIONS (1)
  - OVARIAN HYPERSTIMULATION SYNDROME [None]
